FAERS Safety Report 5463381-6 (Version None)
Quarter: 2007Q3

REPORT INFORMATION
  Report Type: 
  Country: None (occurrence: None)
  Receive Date: 20070920
  Receipt Date: 20070910
  Transmission Date: 20080115
  Serious: Yes (Other)
  Sender: FDA-Public Use
  Company Number: US-SANOFI-SYNTHELABO-A03200701148

PATIENT
  Sex: Female
  Weight: 59 kg

DRUGS (6)
  1. AMBIEN [Suspect]
     Indication: BEREAVEMENT
     Route: 048
  2. AMBIEN [Suspect]
     Indication: INSOMNIA
     Route: 048
  3. AMBIEN [Suspect]
     Route: 048
     Dates: start: 19970101
  4. AMBIEN [Suspect]
     Route: 048
     Dates: start: 19970101
  5. ZYRTEC [Concomitant]
     Dosage: UNK
     Route: 065
  6. PROZAC [Concomitant]
     Dosage: UNK
     Route: 065

REACTIONS (5)
  - AMNESIA [None]
  - INTENTIONAL OVERDOSE [None]
  - LOSS OF CONSCIOUSNESS [None]
  - RECTAL HAEMORRHAGE [None]
  - VICTIM OF SEXUAL ABUSE [None]
